FAERS Safety Report 11481675 (Version 1)
Quarter: 2015Q3

REPORT INFORMATION
  Report Type: Report from Study
  Country: IT (occurrence: IT)
  Receive Date: 20150909
  Receipt Date: 20150909
  Transmission Date: 20151125
  Serious: Yes (Death, Hospitalization, Other)
  Sender: FDA-Public Use
  Company Number: IT-GILEAD-2015-0170803

PATIENT
  Age: 63 Year
  Sex: Female

DRUGS (2)
  1. SOFOSBUVIR [Suspect]
     Active Substance: SOFOSBUVIR
     Indication: HEPATITIS C
     Dosage: UNK
     Route: 065
  2. RIBAVIRIN. [Suspect]
     Active Substance: RIBAVIRIN
     Indication: HEPATITIS C
     Dosage: 800 MG, UNK
     Route: 065
     Dates: start: 20140924

REACTIONS (5)
  - Femur fracture [Unknown]
  - Asthenia [Unknown]
  - Generalised oedema [Unknown]
  - Ascites [Unknown]
  - Gastrointestinal disorder [Fatal]

NARRATIVE: CASE EVENT DATE: 20150108
